FAERS Safety Report 23559640 (Version 2)
Quarter: 2024Q1

REPORT INFORMATION
  Report Type: Spontaneous
  Country: TR (occurrence: TR)
  Receive Date: 20240223
  Receipt Date: 20240308
  Transmission Date: 20240410
  Serious: Yes (Other)
  Sender: FDA-Public Use
  Company Number: TR-ELI_LILLY_AND_COMPANY-TR202402009689

PATIENT
  Age: 44 Year
  Sex: Female

DRUGS (2)
  1. EMGALITY [Suspect]
     Active Substance: GALCANEZUMAB-GNLM
     Indication: Migraine
     Dosage: UNK UNK, SINGLE (LOADING DOSE)
     Route: 058
     Dates: start: 202308
  2. EMGALITY [Suspect]
     Active Substance: GALCANEZUMAB-GNLM
     Dosage: UNK UNK, MONTHLY (1/M)
     Route: 058
     Dates: end: 202401

REACTIONS (2)
  - Polyp [Unknown]
  - Injection site reaction [Unknown]
